FAERS Safety Report 8805791 (Version 2)
Quarter: 2012Q4

REPORT INFORMATION
  Report Type: Spontaneous
  Country: IE (occurrence: None)
  Receive Date: 20120918
  Receipt Date: 20121011
  Transmission Date: 20130627
  Serious: Yes (Other)
  Sender: FDA-Public Use
  Company Number: FK201202596

PATIENT
  Age: 63 Year
  Sex: Female

DRUGS (1)
  1. PROPOFOL [Suspect]
     Indication: COLONOSCOPY
     Route: 042
     Dates: start: 20120324, end: 20120324

REACTIONS (4)
  - Body temperature increased [None]
  - Blood pressure increased [None]
  - Chills [None]
  - Heart rate increased [None]
